FAERS Safety Report 13453418 (Version 1)
Quarter: 2017Q2

REPORT INFORMATION
  Report Type: Spontaneous
  Country: US (occurrence: US)
  Receive Date: 20170418
  Receipt Date: 20170418
  Transmission Date: 20170830
  Serious: No
  Sender: FDA-Public Use
  Company Number: US-ALLERGAN-1666732US

PATIENT
  Sex: Female

DRUGS (6)
  1. LATISSE [Suspect]
     Active Substance: BIMATOPROST
     Indication: GROWTH OF EYELASHES
     Dosage: 1 GTT, QHS
     Route: 061
     Dates: start: 2012
  2. LATISSE [Suspect]
     Active Substance: BIMATOPROST
     Dosage: UNK
  3. VITAMIN D [Concomitant]
     Active Substance: CHOLECALCIFEROL
     Indication: SUPPLEMENTATION THERAPY
     Dosage: UNK UNK, QD
     Route: 048
  4. SYNTHROID [Concomitant]
     Active Substance: LEVOTHYROXINE SODIUM
     Indication: HYPOTHYROIDISM
     Dosage: UNK
     Route: 048
  5. LATISSE [Suspect]
     Active Substance: BIMATOPROST
     Dosage: UNK
  6. LATISSE [Suspect]
     Active Substance: BIMATOPROST
     Dosage: UNK

REACTIONS (4)
  - Madarosis [Recovered/Resolved]
  - Drug dose omission [Unknown]
  - Drug ineffective [Unknown]
  - Hypothyroidism [Not Recovered/Not Resolved]

NARRATIVE: CASE EVENT DATE: 2016
